FAERS Safety Report 6672858-7 (Version None)
Quarter: 2010Q2

REPORT INFORMATION
  Report Type: 
  Country: None (occurrence: None)
  Receive Date: 20100408
  Receipt Date: 20100329
  Transmission Date: 20101027
  Serious: Yes (Hospitalization, Other)
  Sender: FDA-Public Use
  Company Number: PHEH2009US15956

PATIENT
  Sex: Male

DRUGS (7)
  1. EXJADE [Suspect]
     Dosage: 500 MG, BID
     Route: 048
  2. EXJADE [Suspect]
     Dosage: 500 MG, QD
     Route: 048
     Dates: start: 20091102
  3. ANTIBIOTICS [Suspect]
  4. ANTIINFLAMMATORY/ANTIRHEUMATIC NON-STEROIDS [Suspect]
     Dosage: UNK
  5. CHEMOTHERAPEUTICS NOS [Concomitant]
  6. IMODIUM [Concomitant]
     Dosage: UNK
  7. ANTIEMETICS AND ANTINAUSEANTS [Concomitant]

REACTIONS (4)
  - GALLBLADDER DISORDER [None]
  - GALLBLADDER OPERATION [None]
  - GASTROINTESTINAL DISORDER [None]
  - STAPHYLOCOCCAL INFECTION [None]
